FAERS Safety Report 8022325-3 (Version None)
Quarter: 2012Q1

REPORT INFORMATION
  Report Type: 
  Country: None (occurrence: None)
  Receive Date: 20120104
  Receipt Date: 20110629
  Transmission Date: 20120608
  Serious: No
  Sender: FDA-Public Use
  Company Number: US-MYLANLABS-2011S1013662

PATIENT
  Sex: Female

DRUGS (1)
  1. KETOPROFEN [Suspect]
     Dates: start: 20110615, end: 20110601

REACTIONS (6)
  - VOMITING [None]
  - HYPERHIDROSIS [None]
  - GASTROOESOPHAGEAL REFLUX DISEASE [None]
  - DIARRHOEA [None]
  - CONFUSIONAL STATE [None]
  - HYPERSENSITIVITY [None]
